FAERS Safety Report 14194674 (Version 1)
Quarter: 2017Q4

REPORT INFORMATION
  Report Type: Spontaneous
  Country: US (occurrence: US)
  Receive Date: 20171116
  Receipt Date: 20171116
  Transmission Date: 20180321
  Serious: No
  Sender: FDA-Public Use
  Company Number: US-PFIZER INC-2017488909

PATIENT
  Sex: Female

DRUGS (3)
  1. CELEBREX [Suspect]
     Active Substance: CELECOXIB
     Indication: ARTHRITIS
     Dosage: UNK
  2. CELEBREX [Suspect]
     Active Substance: CELECOXIB
     Indication: PAIN
  3. CELEBREX [Suspect]
     Active Substance: CELECOXIB
     Indication: BACK DISORDER

REACTIONS (1)
  - Drug ineffective [Unknown]
